FAERS Safety Report 7155555-3 (Version None)
Quarter: 2010Q4

REPORT INFORMATION
  Report Type: 
  Country: None (occurrence: None)
  Receive Date: 20101214
  Receipt Date: 20091116
  Transmission Date: 20110411
  Serious: Yes (Other)
  Sender: FDA-Public Use
  Company Number: US-AMGEN-TCS344153

PATIENT

DRUGS (1)
  1. ENBREL [Suspect]
     Indication: RHEUMATOID ARTHRITIS
     Dosage: 50 MG, QWK
     Route: 058
     Dates: start: 20090415, end: 20090801

REACTIONS (6)
  - AGITATION [None]
  - HEADACHE [None]
  - MULTIPLE SCLEROSIS [None]
  - MYALGIA [None]
  - SPEECH DISORDER [None]
  - STRESS [None]
